FAERS Safety Report 4834182-4 (Version None)
Quarter: 2005Q4

REPORT INFORMATION
  Report Type: 
  Country: None (occurrence: None)
  Receive Date: 20051122
  Receipt Date: 20051117
  Transmission Date: 20060501
  Serious: Yes (Other)
  Sender: FDA-Public Use
  Company Number: 2005AP05977

PATIENT
  Age: 86 Year
  Sex: Female

DRUGS (2)
  1. SEROQUEL [Suspect]
     Route: 048
     Dates: start: 20050119, end: 20051025
  2. MAGNESIUM OXIDE [Concomitant]
     Route: 048
     Dates: start: 20050119, end: 20051025

REACTIONS (2)
  - BILE DUCT STENOSIS [None]
  - BILE DUCT STONE [None]
